FAERS Safety Report 8384895-5 (Version None)
Quarter: 2012Q2

REPORT INFORMATION
  Report Type: 
  Country: None (occurrence: None)
  Receive Date: 20120524
  Receipt Date: 20120518
  Transmission Date: 20120825
  Serious: No
  Sender: FDA-Public Use
  Company Number: US-PFIZER INC-2012090749

PATIENT
  Sex: Female

DRUGS (2)
  1. ADVIL [Suspect]
     Indication: PAIN
  2. ADVIL [Suspect]
     Indication: ARTHRITIS
     Dosage: 200 MG, 1 OR 2 CAPLETS DAILY
     Route: 048

REACTIONS (2)
  - EPISTAXIS [None]
  - WEIGHT FLUCTUATION [None]
